FAERS Safety Report 5318775-6 (Version None)
Quarter: 2007Q3

REPORT INFORMATION
  Report Type: 
  Country: None (occurrence: None)
  Receive Date: 20070504
  Receipt Date: 20070504
  Transmission Date: 20080115
  Serious: Yes (Life-Threatening)
  Sender: FDA-Public Use
  Company Number: None

PATIENT
  Sex: Female
  Weight: 65.7716 kg

DRUGS (1)
  1. PROAIR HFA [Suspect]
     Indication: ASTHMA
     Dosage: 2 PUFFS AS NEEDED
     Route: 055
     Dates: start: 20070404, end: 20070419

REACTIONS (6)
  - ASTHMA [None]
  - CONDITION AGGRAVATED [None]
  - DEPENDENCE [None]
  - DRUG EFFECT DECREASED [None]
  - PHARMACEUTICAL PRODUCT COMPLAINT [None]
  - POOR QUALITY DRUG ADMINISTERED [None]
